FAERS Safety Report 14448855 (Version 1)
Quarter: 2018Q1

REPORT INFORMATION
  Report Type: Spontaneous
  Country: FR (occurrence: FR)
  Receive Date: 20180126
  Receipt Date: 20180126
  Transmission Date: 20180509
  Serious: Yes (Hospitalization)
  Sender: FDA-Public Use
  Company Number: FR-TEVA-2018-FR-848529

PATIENT
  Age: 91 Year
  Sex: Female

DRUGS (11)
  1. SPECIAFOLDINE [Concomitant]
     Active Substance: FOLIC ACID
  2. METOJECT 15 MG/0,30 ML [Suspect]
     Active Substance: METHOTREXATE SODIUM
     Indication: EMPHYSEMATOUS CYSTITIS
     Route: 042
     Dates: end: 20171014
  3. DEROXAT [Concomitant]
     Active Substance: PAROXETINE HYDROCHLORIDE
  4. COAPROVEL [Concomitant]
     Active Substance: HYDROCHLOROTHIAZIDE\IRBESARTAN
  5. DUOPLAVIN [Concomitant]
     Active Substance: ASPIRIN\CLOPIDOGREL
  6. ACTISKENAN [Concomitant]
     Active Substance: MORPHINE SULFATE
  7. DIFFU K [Concomitant]
     Active Substance: POTASSIUM CHLORIDE
  8. LAROXYL [Concomitant]
     Active Substance: AMITRIPTYLINE HYDROCHLORIDE
  9. ZYLORIC [Concomitant]
     Active Substance: ALLOPURINOL
  10. PREDNISONE. [Suspect]
     Active Substance: PREDNISONE
     Indication: RHEUMATOID ARTHRITIS
     Route: 048
  11. PINAVERIUM (BROMURE DE) [Concomitant]

REACTIONS (1)
  - Emphysematous cystitis [Not Recovered/Not Resolved]

NARRATIVE: CASE EVENT DATE: 20171014
